FAERS Safety Report 5937968-8 (Version None)
Quarter: 2008Q4

REPORT INFORMATION
  Report Type: 
  Country: None (occurrence: None)
  Receive Date: 20081031
  Receipt Date: 20081021
  Transmission Date: 20090506
  Serious: Yes (Death, Hospitalization)
  Sender: FDA-Public Use
  Company Number: JP-PFIZER INC-2008078004

PATIENT
  Age: 25 Year
  Sex: Female

DRUGS (3)
  1. CELECOX [Suspect]
     Indication: RHEUMATOID ARTHRITIS
     Dosage: DAILY DOSE:200MG
     Route: 048
     Dates: start: 20080311, end: 20080401
  2. DAI-BOFU-TO [Concomitant]
     Dosage: DAILY DOSE:10.5GRAM
     Dates: start: 20080311, end: 20080331
  3. ISALON [Concomitant]
     Route: 048
     Dates: start: 20080311, end: 20080331

REACTIONS (1)
  - SYSTEMIC LUPUS ERYTHEMATOSUS [None]
